FAERS Safety Report 7701650-7 (Version None)
Quarter: 2011Q3

REPORT INFORMATION
  Report Type: 
  Country: None (occurrence: None)
  Receive Date: 20110822
  Receipt Date: 20110325
  Transmission Date: 20111222
  Serious: Yes (Other)
  Sender: FDA-Public Use
  Company Number: US-BAYER-200934803NA

PATIENT
  Age: 20 Year
  Sex: Male
  Weight: 61.224 kg

DRUGS (12)
  1. TRASYLOL [Suspect]
     Indication: TRICUSPID VALVE REPLACEMENT
     Dosage: INITAL TEST DOSE, THEN 200 ML LOADING DOSE FOLLOWED BY 50ML/HR INFUSION
     Dates: start: 19980206, end: 19980206
  2. UNASYN [AMPICILLIN SODIUM,SULBACTAM SODIUM] [Concomitant]
     Dosage: UNK
  3. HEPARIN [Concomitant]
  4. ERYTHROMYCIN [Concomitant]
     Dosage: 4 MG, QID
     Route: 048
  5. RED BLOOD CELLS [Concomitant]
     Dosage: 4 U, UNK
     Route: 042
     Dates: start: 19980206
  6. MOTRIN [Concomitant]
     Dosage: 800 MG, TID
     Route: 048
  7. CEFAZOLIN [Concomitant]
     Dosage: 2 G, UNK
     Route: 042
  8. BENZONATATE [Concomitant]
     Dosage: 100 MG, QID
     Route: 048
  9. CEFOTAXIME [Concomitant]
     Route: 048
  10. PENICILLIN [Concomitant]
     Dosage: UNK
     Route: 042
     Dates: start: 19980202
  11. PROTAMINE [Concomitant]
  12. GENTAMICIN [Concomitant]
     Dosage: UNK
     Route: 042
     Dates: start: 19980202

REACTIONS (12)
  - FEAR [None]
  - ANXIETY [None]
  - RENAL FAILURE [None]
  - DEPRESSION [None]
  - EMOTIONAL DISTRESS [None]
  - MULTI-ORGAN FAILURE [None]
  - RENAL INJURY [None]
  - NERVOUSNESS [None]
  - DISABILITY [None]
  - INJURY [None]
  - PAIN [None]
  - ANHEDONIA [None]
